FAERS Safety Report 7249880-5 (Version None)
Quarter: 2011Q1

REPORT INFORMATION
  Report Type: 
  Country: None (occurrence: None)
  Receive Date: 20110128
  Receipt Date: 20100726
  Transmission Date: 20110831
  Serious: No
  Sender: FDA-Public Use
  Company Number: A0872349A

PATIENT
  Age: 47 Year
  Sex: Female

DRUGS (2)
  1. WELLBUTRIN [Suspect]
     Indication: DEPRESSION
     Dosage: 1TAB PER DAY
     Route: 048
  2. ESTRADIOL [Concomitant]

REACTIONS (2)
  - ANXIETY [None]
  - SOMNOLENCE [None]
